FAERS Safety Report 21039667 (Version 2)
Quarter: 2022Q3

REPORT INFORMATION
  Report Type: Spontaneous
  Country: US (occurrence: US)
  Receive Date: 20220704
  Receipt Date: 20220721
  Transmission Date: 20221027
  Serious: No
  Sender: FDA-Public Use
  Company Number: US-Calliditas-2022CAL00168

PATIENT
  Age: 64 Year
  Sex: Male

DRUGS (6)
  1. TARPEYO [Suspect]
     Active Substance: BUDESONIDE
     Indication: IgA nephropathy
     Dosage: 16 MG (4 MG CAPSULES) ONCE DAILY
     Route: 048
     Dates: start: 20220527
  2. ELIQUIS [Concomitant]
     Active Substance: APIXABAN
     Dosage: 5 MG BID
     Route: 048
  3. DILTIAZEM [Concomitant]
     Active Substance: DILTIAZEM
     Dosage: 180MG BID
     Route: 048
  4. Solle naturals [Concomitant]
     Indication: Detoxification
  5. LOSARTAN [Concomitant]
     Active Substance: LOSARTAN
     Dosage: 50MG AM
     Route: 048
  6. CARVEDILOL [Concomitant]
     Active Substance: CARVEDILOL
     Dosage: 25MG BID
     Route: 048

REACTIONS (12)
  - Dysgeusia [Not Recovered/Not Resolved]
  - Candida infection [Unknown]
  - Cough [Unknown]
  - Dry mouth [Not Recovered/Not Resolved]
  - Anosmia [Not Recovered/Not Resolved]
  - Blood pressure increased [Unknown]
  - Sleep disorder [Unknown]
  - Agitation [Unknown]
  - Anger [Unknown]
  - Tremor [Unknown]
  - Foaming at mouth [Unknown]
  - Body temperature increased [Unknown]

NARRATIVE: CASE EVENT DATE: 20220601
